FAERS Safety Report 4644128-X (Version None)
Quarter: 2005Q2

REPORT INFORMATION
  Report Type: 
  Country: None (occurrence: None)
  Receive Date: 20050425
  Receipt Date: 20041203
  Transmission Date: 20051028
  Serious: Yes (Other)
  Sender: FDA-Public Use
  Company Number: GB-GLAXOSMITHKLINE-B0359725A

PATIENT
  Sex: Female

DRUGS (1)
  1. SEROXAT [Suspect]
     Route: 065

REACTIONS (6)
  - ANOREXIA [None]
  - DEPRESSED MOOD [None]
  - HYPERHIDROSIS [None]
  - SUICIDE ATTEMPT [None]
  - TREMOR [None]
  - WEIGHT DECREASED [None]
